FAERS Safety Report 9263829 (Version 2)
Quarter: 2013Q2

REPORT INFORMATION
  Report Type: Spontaneous
  Country: US (occurrence: US)
  Receive Date: 20130430
  Receipt Date: 20130529
  Transmission Date: 20140414
  Serious: Yes (Hospitalization)
  Sender: FDA-Public Use
  Company Number: US-MERCK-1304USA016665

PATIENT
  Age: 38 Year
  Sex: Female

DRUGS (1)
  1. SAPHRIS [Suspect]
     Indication: SOMNOLENCE
     Dosage: UNK
     Route: 060

REACTIONS (1)
  - Adverse event [Unknown]
